FAERS Safety Report 4734364-6 (Version None)
Quarter: 2005Q3

REPORT INFORMATION
  Report Type: 
  Country: None (occurrence: None)
  Receive Date: 20050804
  Receipt Date: 20050726
  Transmission Date: 20060218
  Serious: Yes (Other)
  Sender: FDA-Public Use
  Company Number: PHEH2005US08318

PATIENT
  Sex: Male

DRUGS (2)
  1. CLOZARIL [Suspect]
     Indication: SCHIZOAFFECTIVE DISORDER
     Dosage: UNK, UNK
  2. CLOZARIL [Suspect]
     Dosage: UNK, UNK

REACTIONS (5)
  - AMNESIA [None]
  - CONDITION AGGRAVATED [None]
  - DEPRESSED MOOD [None]
  - DRUG INEFFECTIVE [None]
  - IMPAIRED WORK ABILITY [None]
